FAERS Safety Report 7132703-2 (Version None)
Quarter: 2010Q4

REPORT INFORMATION
  Report Type: 
  Country: None (occurrence: None)
  Receive Date: 20101129
  Receipt Date: 20101129
  Transmission Date: 20110411
  Serious: No
  Sender: FDA-Public Use
  Company Number: None

PATIENT
  Sex: Male
  Weight: 95.5 kg

DRUGS (2)
  1. SIMVASTATIN TABS 40MG WATSON LABS [Suspect]
     Indication: BLOOD CHOLESTEROL INCREASED
     Dosage: SIMVASTATINN 40MG 1 / DAY ORAL
     Route: 048
     Dates: start: 20100202, end: 20100601
  2. SIMVASTATIN TABS 40MG WATSON LABS [Suspect]
     Indication: BLOOD CHOLESTEROL INCREASED
     Dosage: SIMVASTATINN 40MG 1 / DAY ORAL
     Route: 048
     Dates: start: 20100801, end: 20101015

REACTIONS (5)
  - DISORIENTATION [None]
  - IMPAIRED WORK ABILITY [None]
  - MEMORY IMPAIRMENT [None]
  - MUSCULAR WEAKNESS [None]
  - MYALGIA [None]
